FAERS Safety Report 24989631 (Version 1)
Quarter: 2025Q1

REPORT INFORMATION
  Report Type: Spontaneous
  Country: RU (occurrence: RU)
  Receive Date: 20250220
  Receipt Date: 20250220
  Transmission Date: 20250408
  Serious: Yes (Disabling)
  Sender: NOVARTIS
  Company Number: RU-002147023-NVSC2025RU027181

PATIENT
  Age: 40 Year
  Sex: Female

DRUGS (2)
  1. TRAMETINIB [Suspect]
     Active Substance: TRAMETINIB
     Indication: Malignant melanoma
     Route: 048
     Dates: end: 20250211
  2. DABRAFENIB [Suspect]
     Active Substance: DABRAFENIB
     Indication: Malignant melanoma
     Route: 048
     Dates: end: 20250211

REACTIONS (2)
  - Iridocyclitis [Unknown]
  - Pupillary block [Unknown]

NARRATIVE: CASE EVENT DATE: 20250210
